FAERS Safety Report 5026194-5 (Version None)
Quarter: 2006Q2

REPORT INFORMATION
  Report Type: 
  Country: None (occurrence: None)
  Receive Date: 20060608
  Receipt Date: 19970212
  Transmission Date: 20061013
  Serious: Yes (Hospitalization)
  Sender: FDA-Public Use
  Company Number: 97-01-0373

PATIENT
  Sex: Female
  Weight: 63 kg

DRUGS (7)
  1. ETHYOL [Suspect]
     Indication: ADVERSE DRUG REACTION
     Dosage: INTRAVENOUS
     Dates: start: 19970115, end: 19970115
  2. CISPLATIN [Concomitant]
  3. BLEOMYCIN [Concomitant]
  4. ETOPOSIDE [Concomitant]
  5. ZOFRAN [Concomitant]
  6. METHYLPREDNISOLONE SODIUM SUCCINATE [Concomitant]
  7. NORMAL SALINE [Concomitant]

REACTIONS (5)
  - BLOOD CHLORIDE INCREASED [None]
  - BLOOD POTASSIUM DECREASED [None]
  - EXTRAPYRAMIDAL DISORDER [None]
  - PARAESTHESIA [None]
  - TETANY [None]
